FAERS Safety Report 8928617 (Version 1)
Quarter: 2012Q4

REPORT INFORMATION
  Report Type: Report from Study
  Country: US (occurrence: US)
  Receive Date: 20121127
  Receipt Date: 20121127
  Transmission Date: 20130627
  Serious: Yes (Other)
  Sender: FDA-Public Use
  Company Number: US-ROCHE-GNE311356

PATIENT
  Sex: Female
  Weight: 90.8 kg

DRUGS (9)
  1. OMALIZUMAB [Suspect]
     Indication: ASTHMA
     Dosage: 2 UNK, Q2W
     Route: 058
     Dates: start: 20100311
  2. BENADRYL [Concomitant]
     Indication: PRODUCT USED FOR UNKNOWN INDICATION
  3. DOXEPIN [Concomitant]
     Indication: PRODUCT USED FOR UNKNOWN INDICATION
  4. CEPHALOSPORIN NOS [Concomitant]
     Indication: PRODUCT USED FOR UNKNOWN INDICATION
  5. IBUPROFEN [Concomitant]
     Indication: PAIN
  6. TRIAMCINOLON [Concomitant]
     Indication: DERMATITIS ATOPIC
     Dosage: 10 mg, bid
     Route: 065
  7. ZYRTEC [Concomitant]
     Indication: PRURITUS
     Dosage: UNK
     Route: 065
  8. RANITIDINE [Concomitant]
     Indication: URTICARIA CHRONIC
     Dosage: UNK
     Route: 048
  9. PROAIR (UNITED STATES) [Concomitant]
     Indication: ASTHMA
     Dosage: UNK
     Route: 065

REACTIONS (5)
  - Urticaria [Not Recovered/Not Resolved]
  - Dyspnoea [Unknown]
  - Rash [Unknown]
  - Pruritus [Unknown]
  - Throat tightness [Unknown]
